FAERS Safety Report 6711321-1 (Version None)
Quarter: 2010Q2

REPORT INFORMATION
  Report Type: 
  Country: None (occurrence: None)
  Receive Date: 20100505
  Receipt Date: 20100216
  Transmission Date: 20101027
  Serious: No
  Sender: FDA-Public Use
  Company Number: US-BAYER-201023983GPV

PATIENT
  Age: 54 Year
  Sex: Female

DRUGS (3)
  1. CIPROFLOXACIN [Suspect]
     Indication: PYELONEPHRITIS
  2. CIPROFLOXACIN [Suspect]
  3. LEVOFLOXACIN [Suspect]
     Indication: URINARY TRACT INFECTION

REACTIONS (3)
  - DRUG ERUPTION [None]
  - RASH GENERALISED [None]
  - SKIN PLAQUE [None]
